FAERS Safety Report 9350406 (Version 1)
Quarter: 2013Q2

REPORT INFORMATION
  Report Type: Spontaneous
  Country: FR (occurrence: FR)
  Receive Date: 20130617
  Receipt Date: 20130617
  Transmission Date: 20140414
  Serious: Yes (Other)
  Sender: FDA-Public Use
  Company Number: FR-ROCHE-1237131

PATIENT
  Age: 64 Year
  Sex: Male

DRUGS (5)
  1. ZELBORAF [Suspect]
     Indication: MALIGNANT MELANOMA
     Route: 048
     Dates: start: 20130426, end: 20130528
  2. ZELBORAF [Suspect]
     Route: 048
     Dates: start: 201201, end: 201206
  3. ABSTRAL [Concomitant]
     Dosage: ONCE DAILY
     Route: 060
     Dates: start: 20130415, end: 20130531
  4. LAROXYL [Concomitant]
     Route: 048
     Dates: start: 20130522
  5. DUROGESIC [Concomitant]

REACTIONS (1)
  - Cardiac flutter [Not Recovered/Not Resolved]
